FAERS Safety Report 9351362 (Version 3)
Quarter: 2013Q2

REPORT INFORMATION
  Report Type: Spontaneous
  Country: US (occurrence: US)
  Receive Date: 20130617
  Receipt Date: 20130628
  Transmission Date: 20140414
  Serious: Yes (Hospitalization)
  Sender: FDA-Public Use
  Company Number: US-BAXTER-2013BAX022369

PATIENT
  Sex: Male

DRUGS (2)
  1. DIANEAL LOW CALCIUM [Suspect]
     Indication: PERITONEAL DIALYSIS
     Dosage: TOTAL FILL VOLUMES 2000ML
     Route: 033
     Dates: start: 20100505
  2. DIANEAL LOW CALCIUM [Suspect]
     Indication: PERITONEAL DIALYSIS
     Dosage: TOTAL FILL VOLUMES 2000ML
     Route: 033
     Dates: start: 20100505

REACTIONS (1)
  - Subcutaneous abscess [Unknown]
